FAERS Safety Report 7381355-5 (Version None)
Quarter: 2011Q1

REPORT INFORMATION
  Report Type: 
  Country: None (occurrence: None)
  Receive Date: 20110321
  Receipt Date: 20110309
  Transmission Date: 20110831
  Serious: Yes (Hospitalization)
  Sender: FDA-Public Use
  Company Number: TAJPN-11-0214

PATIENT
  Age: 54 Year
  Sex: Female
  Weight: 39 kg

DRUGS (1)
  1. ABRAXANE [Suspect]
     Indication: BREAST CANCER
     Dosage: 192 MG
     Dates: start: 20110106

REACTIONS (1)
  - PYELONEPHRITIS [None]
